FAERS Safety Report 16215264 (Version 1)
Quarter: 2019Q2

REPORT INFORMATION
  Report Type: Spontaneous
  Country: US (occurrence: US)
  Receive Date: 20190418
  Receipt Date: 20190418
  Transmission Date: 20190711
  Serious: Yes (Death, Life-Threatening, Hospitalization)
  Sender: FDA-Public Use
  Company Number: None

PATIENT
  Age: 76 Year
  Sex: Male
  Weight: 74.25 kg

DRUGS (2)
  1. MULTI VITAMIN [Concomitant]
     Active Substance: VITAMINS
  2. ELIQUIS [Suspect]
     Active Substance: APIXABAN
     Indication: PULMONARY ARTERY THROMBOSIS
     Dosage: ?          QUANTITY:1 TABLET(S);?
     Route: 048
     Dates: start: 20190219, end: 20190329

REACTIONS (4)
  - Respiratory failure [None]
  - Pneumonia [None]
  - Pulmonary fibrosis [None]
  - Pleural effusion [None]

NARRATIVE: CASE EVENT DATE: 20190304
